FAERS Safety Report 8543803-4 (Version None)
Quarter: 2012Q3

REPORT INFORMATION
  Report Type: 
  Country: None (occurrence: None)
  Receive Date: 20120717
  Receipt Date: 20120702
  Transmission Date: 20120928
  Serious: Yes (Other)
  Sender: FDA-Public Use
  Company Number: JPI-P-022443

PATIENT
  Age: 70 Year
  Sex: Female
  Weight: 79.3795 kg

DRUGS (11)
  1. XYREM [Suspect]
     Indication: CATAPLEXY
     Dosage: 6 GM, (3 GM, 2 IN 1 D), ORAL
     Route: 048
     Dates: start: 20021002
  2. CALCIUM [Concomitant]
  3. ACETAMINOPHEN [Concomitant]
  4. LEVOTHYROXINE SODIUM [Concomitant]
  5. OMEPRAZOLE [Concomitant]
  6. METFORMIN HYDROCHLORIDE [Concomitant]
  7. ALLOPURINOL [Concomitant]
  8. LOVASTATIN [Concomitant]
  9. GLYBURIDE [Concomitant]
  10. NAPROXEN [Concomitant]
  11. ENALAPRIL MALEATE [Concomitant]

REACTIONS (1)
  - TRANSIENT ISCHAEMIC ATTACK [None]
